FAERS Safety Report 17854734 (Version 1)
Quarter: 2020Q2

REPORT INFORMATION
  Report Type: Spontaneous
  Country: CA (occurrence: CA)
  Receive Date: 20200603
  Receipt Date: 20200603
  Transmission Date: 20200714
  Serious: Yes (Other)
  Sender: FDA-Public Use
  Company Number: CA-TEVA-2020-CA-1241728

PATIENT
  Age: 25 Year
  Sex: Male

DRUGS (3)
  1. NASONEX [Suspect]
     Active Substance: MOMETASONE FUROATE
     Indication: PRODUCT USED FOR UNKNOWN INDICATION
     Dosage: SPRAY, METERED DOSE
     Route: 065
  2. SALBUTAMOL [Suspect]
     Active Substance: ALBUTEROL
     Indication: PRODUCT USED FOR UNKNOWN INDICATION
     Route: 065
  3. PULMOZYME [Suspect]
     Active Substance: DORNASE ALFA
     Indication: CYSTIC FIBROSIS
     Dosage: 2.5 MILLIGRAM DAILY; SOLUTION INHALATION
     Route: 055

REACTIONS (3)
  - Therapeutic product effect incomplete [Unknown]
  - Increased viscosity of upper respiratory secretion [Unknown]
  - Infective pulmonary exacerbation of cystic fibrosis [Unknown]
